FAERS Safety Report 11228019 (Version 1)
Quarter: 2015Q2

REPORT INFORMATION
  Report Type: Spontaneous
  Country: US (occurrence: None)
  Receive Date: 20150629
  Receipt Date: 20150629
  Transmission Date: 20150821
  Serious: Yes (Hospitalization)
  Sender: FDA-Public Use
  Company Number: None

PATIENT
  Age: 59 Year
  Sex: Male
  Weight: 70.9 kg

DRUGS (2)
  1. CARBOPLATIN. [Suspect]
     Active Substance: CARBOPLATIN
     Dates: end: 20150526
  2. TAXOL [Suspect]
     Active Substance: PACLITAXEL
     Dates: end: 20150526

REACTIONS (5)
  - Nausea [None]
  - Vomiting [None]
  - Abdominal pain upper [None]
  - Pneumonia [None]
  - Cholecystitis [None]

NARRATIVE: CASE EVENT DATE: 20150530
